FAERS Safety Report 13135347 (Version 5)
Quarter: 2017Q1

REPORT INFORMATION
  Report Type: Report from Study
  Country: US (occurrence: US)
  Receive Date: 20170120
  Receipt Date: 20170313
  Transmission Date: 20170428
  Serious: Yes (Hospitalization, Other)
  Sender: FDA-Public Use
  Company Number: US-AMGEN-USASL2017008781

PATIENT
  Age: 75 Year
  Sex: Female

DRUGS (11)
  1. ENBREL [Suspect]
     Active Substance: ETANERCEPT
  2. ENBREL [Suspect]
     Active Substance: ETANERCEPT
  3. ENBREL [Suspect]
     Active Substance: ETANERCEPT
  4. ENBREL [Suspect]
     Active Substance: ETANERCEPT
  5. ENBREL [Suspect]
     Active Substance: ETANERCEPT
     Indication: RHEUMATOID ARTHRITIS
     Dosage: 50 MG, QWK
     Route: 065
  6. ENBREL [Suspect]
     Active Substance: ETANERCEPT
  7. ENBREL [Suspect]
     Active Substance: ETANERCEPT
     Indication: ARTHRITIS
     Dosage: UNK
     Route: 065
  8. ENBREL [Suspect]
     Active Substance: ETANERCEPT
  9. ENBREL [Suspect]
     Active Substance: ETANERCEPT
  10. ENBREL [Suspect]
     Active Substance: ETANERCEPT
  11. ENBREL [Suspect]
     Active Substance: ETANERCEPT

REACTIONS (6)
  - Hand deformity [Not Recovered/Not Resolved]
  - Drug dose omission [Unknown]
  - Incorrect product storage [Unknown]
  - Finger deformity [Unknown]
  - Pain in extremity [Unknown]
  - Hip fracture [Unknown]

NARRATIVE: CASE EVENT DATE: 2015
